FAERS Safety Report 21977853 (Version 1)
Quarter: 2023Q1

REPORT INFORMATION
  Report Type: Spontaneous
  Country: CA (occurrence: CA)
  Receive Date: 20230210
  Receipt Date: 20230210
  Transmission Date: 20230417
  Serious: Yes (Hospitalization, Other)
  Sender: FDA-Public Use
  Company Number: CA-BAYER-2023P008958

PATIENT
  Sex: Female
  Weight: 79.2 kg

DRUGS (3)
  1. YAZ [Suspect]
     Active Substance: DROSPIRENONE\ETHINYL ESTRADIOL
     Dosage: UNK
     Route: 048
     Dates: start: 20090401, end: 20171004
  2. HEPARIN [Concomitant]
     Active Substance: HEPARIN SODIUM
  3. Rivaroxaban 1 mg/ml [Concomitant]

REACTIONS (7)
  - Pulmonary embolism [None]
  - Back pain [None]
  - Syncope [None]
  - Dyspnoea [None]
  - Hypoxia [None]
  - Tachycardia [None]
  - Deep vein thrombosis [None]
